FAERS Safety Report 6237909-2 (Version None)
Quarter: 2009Q2

REPORT INFORMATION
  Report Type: 
  Country: None (occurrence: None)
  Receive Date: 20090621
  Receipt Date: 20090607
  Transmission Date: 20091009
  Serious: Yes (Hospitalization)
  Sender: FDA-Public Use
  Company Number: TR-BAUSCH-2009BL002904

PATIENT
  Age: 24 Year
  Sex: Female

DRUGS (2)
  1. CIPROFLOXACIN [Suspect]
     Indication: SINUSITIS
     Route: 048
     Dates: start: 20070101, end: 20070101
  2. CIPROFLOXACIN [Suspect]
     Indication: URINARY TRACT INFECTION
     Route: 048
     Dates: start: 20070101, end: 20070101

REACTIONS (4)
  - CONVULSION [None]
  - METABOLIC ACIDOSIS [None]
  - MYOPATHY [None]
  - RENAL FAILURE ACUTE [None]
